FAERS Safety Report 11537861 (Version 3)
Quarter: 2016Q1

REPORT INFORMATION
  Report Type: Spontaneous
  Country: DE (occurrence: DE)
  Receive Date: 20150922
  Receipt Date: 20160113
  Transmission Date: 20160525
  Serious: Yes (Death, Other)
  Sender: FDA-Public Use
  Company Number: DE-ALEXION PHARMACEUTICALS INC-A201503544

PATIENT
  Age: 26 Year
  Sex: Female

DRUGS (1)
  1. SOLIRIS [Suspect]
     Active Substance: ECULIZUMAB
     Indication: HAEMOLYTIC URAEMIC SYNDROME
     Dosage: 1200 MG, SINGLE
     Route: 042

REACTIONS (2)
  - Brain oedema [Fatal]
  - Cerebral infarction [Fatal]

NARRATIVE: CASE EVENT DATE: 20150807
